FAERS Safety Report 21940885 (Version 2)
Quarter: 2023Q1

REPORT INFORMATION
  Report Type: Other
  Country: CZ (occurrence: CZ)
  Receive Date: 20230202
  Receipt Date: 20230207
  Transmission Date: 20230418
  Serious: Yes (Other)
  Sender: FDA-Public Use
  Company Number: CZ-CELLTRION INC.-2023CZ001874

PATIENT

DRUGS (6)
  1. RITUXIMAB [Suspect]
     Active Substance: RITUXIMAB
     Indication: Diffuse large B-cell lymphoma
     Dosage: /JUL/2022, /AUG/2022 AND (11-12/2022 ADMINISTERED 2X)
     Route: 042
     Dates: start: 20220701
  2. POLATUZUMAB VEDOTIN [Suspect]
     Active Substance: POLATUZUMAB VEDOTIN
     Indication: Diffuse large B-cell lymphoma
     Dosage: 1.8 MG/KG EVERY 21 DAYS, NOV-DEC/2022 ADMINISTERED POLATUZUMAB-RITUXIMAB TWICE
  3. CYCLOPHOSPHAMIDE [Suspect]
     Active Substance: CYCLOPHOSPHAMIDE
     Indication: Diffuse large B-cell lymphoma
     Dosage: /JUL/2022 AND /AUG/2022
     Dates: start: 20220701
  4. DOXORUBICIN [Suspect]
     Active Substance: DOXORUBICIN
     Indication: Diffuse large B-cell lymphoma
     Dosage: /JUL/2022 AND /AUG/2022
     Dates: start: 20220701
  5. VINCRISTINE [Suspect]
     Active Substance: VINCRISTINE
     Indication: Diffuse large B-cell lymphoma
     Dosage: /JUL/2022 AND /AUG/2022
     Dates: start: 20220701
  6. PREDNISONE [Suspect]
     Active Substance: PREDNISONE
     Indication: Diffuse large B-cell lymphoma
     Dosage: UNK
     Dates: start: 20220701

REACTIONS (18)
  - Haemoptysis [Unknown]
  - Hepatotoxicity [Unknown]
  - Thrombosis in device [Not Recovered/Not Resolved]
  - Off label use [Unknown]
  - Thrombocytopenia [Unknown]
  - Neutropenia [Unknown]
  - Sepsis [Unknown]
  - Haematotoxicity [Unknown]
  - Superinfection bacterial [Unknown]
  - Superinfection fungal [Unknown]
  - Pneumonia respiratory syncytial viral [Unknown]
  - Liver disorder [Unknown]
  - Hypofibrinogenaemia [Unknown]
  - Mucosal inflammation [Unknown]
  - Coagulopathy [Unknown]
  - Anaemia [Unknown]
  - Anaemia [Unknown]
  - Parainfluenzae virus infection [Unknown]
